FAERS Safety Report 9350354 (Version 1)
Quarter: 2013Q2

REPORT INFORMATION
  Report Type: Spontaneous
  Country: US (occurrence: None)
  Receive Date: 20130613
  Receipt Date: 20130613
  Transmission Date: 20140414
  Serious: No
  Sender: FDA-Public Use
  Company Number: None

PATIENT
  Age: 59 Year
  Sex: Male
  Weight: 72.58 kg

DRUGS (6)
  1. OLANZAPINE [Suspect]
     Indication: MAJOR DEPRESSION
     Dosage: 10 MG DAILY PO
     Route: 048
     Dates: start: 201302, end: 201305
  2. OLANZAPINE [Suspect]
     Dosage: 10 MG DAILY PO
     Route: 048
     Dates: start: 201302, end: 201305
  3. BUPROPION [Concomitant]
  4. VIIBRYD [Concomitant]
  5. LORAZEPAM [Concomitant]
  6. ZOLPIDEM [Concomitant]

REACTIONS (3)
  - Product solubility abnormal [None]
  - Drug ineffective [None]
  - Product substitution issue [None]
